FAERS Safety Report 13798271 (Version 5)
Quarter: 2017Q4

REPORT INFORMATION
  Report Type: Spontaneous
  Country: US (occurrence: US)
  Receive Date: 20170727
  Receipt Date: 20171020
  Transmission Date: 20180320
  Serious: Yes (Other)
  Sender: FDA-Public Use
  Company Number: US-AMGEN-USASP2017110931

PATIENT
  Age: 43 Year
  Sex: Female
  Weight: 59.87 kg

DRUGS (3)
  1. ENBREL [Suspect]
     Active Substance: ETANERCEPT
     Indication: RHEUMATOID ARTHRITIS
     Dosage: 1 ML, QWK
     Route: 058
     Dates: start: 20160822, end: 20170313
  2. MTX [Suspect]
     Active Substance: METHOTREXATE SODIUM
     Indication: PRODUCT USED FOR UNKNOWN INDICATION
     Dosage: UNK
     Route: 065
     Dates: start: 201606
  3. XELJANZ XR [Suspect]
     Active Substance: TOFACITINIB CITRATE
     Indication: PRODUCT USED FOR UNKNOWN INDICATION
     Dosage: 11 MG, UNK
     Route: 065

REACTIONS (6)
  - Dizziness [Unknown]
  - Drug effect incomplete [Unknown]
  - Myalgia [Unknown]
  - Synovial cyst [Unknown]
  - Fear of injection [Unknown]
  - Rheumatoid arthritis [Unknown]
